FAERS Safety Report 17178130 (Version 1)
Quarter: 2019Q4

REPORT INFORMATION
  Report Type: Spontaneous
  Country: US (occurrence: US)
  Receive Date: 20191219
  Receipt Date: 20191219
  Transmission Date: 20200122
  Serious: No
  Sender: FDA-Public Use
  Company Number: US-COOPERSURGICAL, INC.-US-2019CPS003273

PATIENT
  Age: 28 Year
  Sex: Female
  Weight: 47.62 kg

DRUGS (3)
  1. CYCLOBENZAPRINE. [Concomitant]
     Active Substance: CYCLOBENZAPRINE
     Indication: MUSCLE SPASMS
     Dosage: 10 MG, TID
     Route: 048
  2. DOXYCYCLINE. [Concomitant]
     Active Substance: DOXYCYCLINE
     Indication: PRODUCT USED FOR UNKNOWN INDICATION
     Route: 048
  3. PARAGARD T 380A [Suspect]
     Active Substance: COPPER
     Indication: CONTRACEPTION
     Dosage: UNK
     Route: 015
     Dates: start: 20151118, end: 20191017

REACTIONS (10)
  - Menorrhagia [Unknown]
  - Vaginal discharge [Not Recovered/Not Resolved]
  - Abdominal pain [Unknown]
  - Device material issue [Unknown]
  - Fungal infection [Unknown]
  - Menstruation irregular [Unknown]
  - Device defective [Recovered/Resolved]
  - Back pain [Unknown]
  - Gynaecological chlamydia infection [Recovering/Resolving]
  - Bacterial vaginosis [Unknown]

NARRATIVE: CASE EVENT DATE: 2019
